FAERS Safety Report 16735452 (Version 1)
Quarter: 2019Q3

REPORT INFORMATION
  Report Type: Spontaneous
  Country: US (occurrence: US)
  Receive Date: 20190708
  Receipt Date: 20190708
  Transmission Date: 20191005
  Serious: Yes (Other)
  Sender: FDA-Public Use
  Company Number: None

PATIENT
  Age: 34 Year
  Sex: Male

DRUGS (1)
  1. VIVITROL [Suspect]
     Active Substance: NALTREXONE
     Indication: ALCOHOLISM
     Dosage: THERAPY START DATE: 14-JUN-2019
     Route: 030
     Dates: start: 20190614, end: 20190708

REACTIONS (1)
  - Migraine [None]

NARRATIVE: CASE EVENT DATE: 20190114
